FAERS Safety Report 17057246 (Version 1)
Quarter: 2019Q4

REPORT INFORMATION
  Report Type: Spontaneous
  Country: CA (occurrence: CA)
  Receive Date: 20191121
  Receipt Date: 20191121
  Transmission Date: 20200122
  Serious: Yes (Disabling)
  Sender: FDA-Public Use
  Company Number: CA-ACCORD-161049

PATIENT
  Age: 5 Year
  Sex: Male
  Weight: 28 kg

DRUGS (17)
  1. CEFAZOLIN [Concomitant]
     Active Substance: CEFAZOLIN
  2. DIPHENHYDRAMINE. [Concomitant]
     Active Substance: DIPHENHYDRAMINE
  3. HEPARIN [Concomitant]
     Active Substance: HEPARIN SODIUM
     Dosage: SOLUTION INTRAVENOUS
  4. LORAZEPAM. [Concomitant]
     Active Substance: LORAZEPAM
  5. PARACETAMOL [Concomitant]
     Active Substance: ACETAMINOPHEN
  6. MORPHINE [Concomitant]
     Active Substance: MORPHINE
  7. CISPLATIN. [Suspect]
     Active Substance: CISPLATIN
     Indication: MEDULLOBLASTOMA
     Dosage: SOLUTION INTRAVENOUS
     Route: 042
  8. DEXAMETHASONE. [Concomitant]
     Active Substance: DEXAMETHASONE
  9. DIMENHYDRINATE. [Concomitant]
     Active Substance: DIMENHYDRINATE
  10. ETOPOSIDE. [Concomitant]
     Active Substance: ETOPOSIDE
  11. METOCLOPRAMIDE. [Concomitant]
     Active Substance: METOCLOPRAMIDE
  12. TIMENTIN [Concomitant]
     Active Substance: CLAVULANATE POTASSIUM\TICARCILLIN DISODIUM
     Dosage: POWDER FOR SOLUTION INTRAVENOUS
  13. TOBRAMYCIN. [Concomitant]
     Active Substance: TOBRAMYCIN
  14. VINCRISTINE [Concomitant]
     Active Substance: VINCRISTINE
  15. ONDANSETRON [Concomitant]
     Active Substance: ONDANSETRON
  16. CODEINE [Concomitant]
     Active Substance: CODEINE
  17. PENTAMIDINE [Concomitant]
     Active Substance: PENTAMIDINE
     Dosage: INJ 300MG/VIAL BP

REACTIONS (2)
  - Ototoxicity [Not Recovered/Not Resolved]
  - Neurosensory hypoacusis [Not Recovered/Not Resolved]
